FAERS Safety Report 9619701 (Version 3)
Quarter: 2013Q4

REPORT INFORMATION
  Report Type: Spontaneous
  Country: RU (occurrence: RU)
  Receive Date: 20131014
  Receipt Date: 20131227
  Transmission Date: 20140711
  Serious: Yes (Hospitalization)
  Sender: FDA-Public Use
  Company Number: RU-ROCHE-1285185

PATIENT
  Age: 78 Year
  Sex: Male

DRUGS (2)
  1. LUCENTIS [Suspect]
     Indication: DIABETIC RETINAL OEDEMA
     Route: 050
     Dates: start: 20130725
  2. LUCENTIS [Suspect]
     Route: 050
     Dates: start: 20130925

REACTIONS (3)
  - Endophthalmitis [Recovering/Resolving]
  - Retinal exudates [Unknown]
  - Red blood cell sedimentation rate increased [Unknown]
